FAERS Safety Report 6358969-4 (Version None)
Quarter: 2009Q3

REPORT INFORMATION
  Report Type: 
  Country: None (occurrence: None)
  Receive Date: 20090914
  Receipt Date: 20090902
  Transmission Date: 20100115
  Serious: Yes (Other)
  Sender: FDA-Public Use
  Company Number: 2009AP003552

PATIENT
  Age: 67 Year
  Sex: Female

DRUGS (6)
  1. VALPROIC ACID [Suspect]
     Indication: AFFECTIVE DISORDER
     Dosage: UNKNOWN; HS
     Route: 048
     Dates: start: 20090729, end: 20090819
  2. DIVALPROEX SODIUM [Suspect]
  3. HYDROCHLOROTHIAZIDE [Concomitant]
  4. ATORVASTATIN CALCIUM [Concomitant]
  5. RAMIPRIL [Concomitant]
  6. CALCIUM CARBONATE [Concomitant]

REACTIONS (2)
  - DRUG LEVEL DECREASED [None]
  - MALABSORPTION [None]
